FAERS Safety Report 4422453-5 (Version None)
Quarter: 2004Q3

REPORT INFORMATION
  Report Type: 
  Country: None (occurrence: None)
  Receive Date: 20040806
  Receipt Date: 20040714
  Transmission Date: 20050211
  Serious: Yes (Hospitalization)
  Sender: FDA-Public Use
  Company Number: USA040772643

PATIENT
  Age: 74 Year
  Sex: Female
  Weight: 58 kg

DRUGS (1)
  1. FORTEO [Suspect]
     Indication: OSTEOPOROSIS
     Dosage: UNK
     Dates: start: 20030601

REACTIONS (7)
  - BLOOD CALCIUM INCREASED [None]
  - DRY MOUTH [None]
  - DYSGEUSIA [None]
  - MUSCLE SPASMS [None]
  - MYALGIA [None]
  - NOCTURIA [None]
  - SPINAL FRACTURE [None]
